FAERS Safety Report 22121300 (Version 1)
Quarter: 2023Q1

REPORT INFORMATION
  Report Type: Spontaneous
  Country: US (occurrence: None)
  Receive Date: 20230321
  Receipt Date: 20230321
  Transmission Date: 20230418
  Serious: Yes (Other)
  Sender: FDA-Public Use
  Company Number: None

PATIENT
  Age: 66 Year
  Sex: Male

DRUGS (14)
  1. HUMIRA [Suspect]
     Active Substance: ADALIMUMAB
     Indication: Psoriatic arthropathy
     Route: 058
  2. AVALIDE TAB [Concomitant]
  3. CRESTOR [Concomitant]
  4. EFFEXOR XR CAP [Concomitant]
  5. FEXOFENADINE TAB [Concomitant]
  6. FLUTICASONE SPR [Concomitant]
  7. FOLIC ACID TAB [Concomitant]
  8. METHOTREXATE [Concomitant]
     Active Substance: METHOTREXATE
  9. PANTOPRAZOLE TAB [Concomitant]
  10. ROPINIROLE TAB [Concomitant]
  11. ROPINIROLE TAB [Concomitant]
  12. SIMVASTATIN [Concomitant]
     Active Substance: SIMVASTATIN
  13. TRAMADL/APAP TAB [Concomitant]
  14. ZOLPIDEM TAB [Concomitant]

REACTIONS (1)
  - Cerebrovascular accident [None]

NARRATIVE: CASE EVENT DATE: 20230206
